FAERS Safety Report 15985852 (Version 1)
Quarter: 2019Q1

REPORT INFORMATION
  Report Type: Spontaneous
  Country: US (occurrence: US)
  Receive Date: 20190220
  Receipt Date: 20190220
  Transmission Date: 20190418
  Serious: Yes (Hospitalization)
  Sender: FDA-Public Use
  Company Number: None

PATIENT
  Age: 39 Year
  Sex: Female

DRUGS (2)
  1. ACTEMRA [Suspect]
     Active Substance: TOCILIZUMAB
     Indication: RHEUMATOID ARTHRITIS
     Dosage: ?          OTHER FREQUENCY:ONCE A WEEK;?
     Route: 058
  2. LORTAB ELIXIR 10-300 MG [Concomitant]
     Dates: start: 20161215

REACTIONS (3)
  - Hospitalisation [None]
  - Therapy cessation [None]
  - Economic problem [None]

NARRATIVE: CASE EVENT DATE: 20190219
